FAERS Safety Report 22996603 (Version 4)
Quarter: 2023Q4

REPORT INFORMATION
  Report Type: Report from Study
  Country: US (occurrence: US)
  Receive Date: 20230928
  Receipt Date: 20231123
  Transmission Date: 20240109
  Serious: Yes (Hospitalization, Other)
  Sender: FDA-Public Use
  Company Number: US-ACADIA PHARMACEUTICALS INC.-ACA-2023-TRF-004087

PATIENT
  Age: 17 Year
  Sex: Female

DRUGS (14)
  1. DAYBUE [Suspect]
     Active Substance: TROFINETIDE
     Indication: Rett syndrome
     Dosage: 50 MILLILITER, BID VIA G-TUBE
     Dates: start: 20230629
  2. DAYBUE [Suspect]
     Active Substance: TROFINETIDE
     Dosage: 35 MILLILITER, BID VIA G-TUBE
     Dates: end: 202309
  3. DAYBUE [Suspect]
     Active Substance: TROFINETIDE
     Dosage: 50 MILLILITER, BID VIA G-TUBE
  4. CETIRIZINE [Concomitant]
     Active Substance: CETIRIZINE HYDROCHLORIDE
     Dosage: 10 MILLIGRAM, QD AS NEEDED
     Route: 048
  5. CLOBAZAM [Concomitant]
     Active Substance: CLOBAZAM
     Dosage: 10 MILLIGRAM FOR 30 DAYS
     Route: 048
  6. CLOBAZAM [Concomitant]
     Active Substance: CLOBAZAM
     Dosage: 15/10/15MG
  7. FAMOTIDINE [Concomitant]
     Active Substance: FAMOTIDINE
     Dosage: 20 MILLIGRAM, QD
     Route: 048
  8. FELBAMATE [Concomitant]
     Active Substance: FELBAMATE
     Dosage: 400 MILLIGRAM, TID
     Route: 048
  9. POLYETHYLENE GLYCOL 3350 [Concomitant]
     Active Substance: POLYETHYLENE GLYCOL 3350
     Dosage: 1/2 CAP DAILY AS NEEDED
     Route: 048
  10. SODIUM CHLORIDE [Concomitant]
     Active Substance: SODIUM CHLORIDE
     Dosage: 3 % FOR NEBULIZATION PRN
  11. VALTOCO [Concomitant]
     Active Substance: DIAZEPAM
     Dosage: 10 MILLIGRAM IN NARE PRN SZ }5 MIN
     Route: 045
  12. DIETARY SUPPLEMENT [Concomitant]
     Active Substance: DIETARY SUPPLEMENT
     Dosage: 250 MILLIGRAM, QD
     Route: 048
  13. VITAMIN D NOS [Concomitant]
     Active Substance: VITAMIN D NOS
     Dosage: 800 IU TAKES 0.5 TABS TID
  14. CARNITOR [Concomitant]
     Active Substance: LEVOCARNITINE
     Dosage: 100MG/ML, 4ML DAILY AS DIRECTED SUGAR FREE
     Route: 048

REACTIONS (7)
  - Aspiration [Unknown]
  - Constipation [Unknown]
  - Blood potassium decreased [Recovered/Resolved]
  - Pneumonia [Recovered/Resolved]
  - Vomiting [Unknown]
  - Diarrhoea [Not Recovered/Not Resolved]
  - Underdose [Not Recovered/Not Resolved]

NARRATIVE: CASE EVENT DATE: 20230901
